FAERS Safety Report 14546751 (Version 2)
Quarter: 2020Q3

REPORT INFORMATION
  Report Type: Other
  Country: US (occurrence: US)
  Receive Date: 20180219
  Receipt Date: 20200802
  Transmission Date: 20201102
  Serious: Yes (Other)
  Sender: FDA-Public Use
  Company Number: US-ROCHE-2076336

PATIENT

DRUGS (3)
  1. BEVACIZUMAB. [Suspect]
     Active Substance: BEVACIZUMAB
     Indication: EPISTAXIS
     Dosage: 1 MG/KG, OR 2.5 MG/KG OR 5 MG/KG EVERY 2?4 WEEKS
     Route: 042
  2. BEVACIZUMAB. [Suspect]
     Active Substance: BEVACIZUMAB
     Indication: HEREDITARY HAEMORRHAGIC TELANGIECTASIA
  3. BEVACIZUMAB. [Suspect]
     Active Substance: BEVACIZUMAB
     Indication: GASTROINTESTINAL HAEMORRHAGE
     Dosage: 4 DOSES
     Route: 042

REACTIONS (4)
  - Intentional product use issue [Unknown]
  - Hypertensive urgency [Recovered/Resolved]
  - Renal impairment [Recovered/Resolved]
  - Off label use [Unknown]
